FAERS Safety Report 15053928 (Version 1)
Quarter: 2018Q2

REPORT INFORMATION
  Report Type: Spontaneous
  Country: US (occurrence: US)
  Receive Date: 20180622
  Receipt Date: 20180622
  Transmission Date: 20180711
  Serious: Yes (Other)
  Sender: FDA-Public Use
  Company Number: US-MYLANLABS-2018M1038292

PATIENT
  Age: 62 Year
  Sex: Female
  Weight: 83 kg

DRUGS (1)
  1. METOPROLOL TARTRATE TABLETS USP [Suspect]
     Active Substance: METOPROLOL TARTRATE
     Indication: HEART RATE DECREASED
     Dosage: 25 MG, UNK
     Route: 048
     Dates: start: 20170610, end: 20170613

REACTIONS (4)
  - Dizziness [Recovered/Resolved]
  - Heart rate increased [Recovered/Resolved]
  - Off label use [Unknown]
  - Palpitations [Recovered/Resolved]

NARRATIVE: CASE EVENT DATE: 20170610
